FAERS Safety Report 5079916-1 (Version None)
Quarter: 2006Q3

REPORT INFORMATION
  Report Type: 
  Country: None (occurrence: None)
  Receive Date: 20060809
  Receipt Date: 20060731
  Transmission Date: 20061208
  Serious: Yes (Hospitalization)
  Sender: FDA-Public Use
  Company Number: VISP-PR-0607L-0498

PATIENT
  Age: 44 Year
  Sex: Female

DRUGS (8)
  1. VISIPAQUE [Suspect]
     Indication: ASTHENIA
     Dosage: SEE IMAGE
     Route: 042
  2. VISIPAQUE [Suspect]
     Indication: DIZZINESS
     Dosage: SEE IMAGE
     Route: 042
  3. VISIPAQUE [Suspect]
     Indication: DYSPNOEA
     Dosage: SEE IMAGE
     Route: 042
  4. VISIPAQUE [Suspect]
     Indication: PULMONARY EMBOLISM
     Dosage: SEE IMAGE
     Route: 042
  5. OMNIPAQUE 140 [Suspect]
     Indication: PULMONARY EMBOLISM
     Dosage: 150 ML, SINGLE DOSE, I.V.
     Route: 042
  6. OMNIPAQUE 140 [Suspect]
     Indication: THROMBOSIS
     Dosage: 150 ML, SINGLE DOSE, I.V.
     Route: 042
  7. HEPARIN [Concomitant]
  8. LEPIRUDIN [Concomitant]

REACTIONS (6)
  - ACUTE GENERALISED EXANTHEMATOUS PUSTULOSIS [None]
  - DRUG HYPERSENSITIVITY [None]
  - EOSINOPHILIA [None]
  - NAUSEA [None]
  - PRURITUS [None]
  - VOMITING [None]
